FAERS Safety Report 9276911 (Version 1)
Quarter: 2013Q2

REPORT INFORMATION
  Report Type: Report from Study
  Country: CL (occurrence: CL)
  Receive Date: 20130507
  Receipt Date: 20130507
  Transmission Date: 20140414
  Serious: Yes (Other)
  Sender: FDA-Public Use
  Company Number: CL-PFIZER INC-2013133441

PATIENT
  Age: 66 Year
  Sex: Male

DRUGS (2)
  1. SUTENT [Suspect]
     Indication: RENAL CANCER
     Dosage: 12.5 MG, 3X/DAY (EVERY 8 HOURS)
     Dates: end: 20090107
  2. SUTENT [Suspect]
     Dosage: 12.5 MG, 3X/DAY (EVERY 8 HOURS)
     Dates: start: 20090621

REACTIONS (4)
  - Mycosis fungoides [Unknown]
  - Skin ulcer [Unknown]
  - Toxicity to various agents [Unknown]
  - Rash [Unknown]
